FAERS Safety Report 24969382 (Version 1)
Quarter: 2025Q1

REPORT INFORMATION
  Report Type: Report from Study
  Country: US (occurrence: US)
  Receive Date: 20250214
  Receipt Date: 20250214
  Transmission Date: 20250409
  Serious: No
  Sender: ROCHE
  Company Number: US-ROCHE-10000205279

PATIENT
  Age: 39 Year
  Sex: Male

DRUGS (5)
  1. OCREVUS [Suspect]
     Active Substance: OCRELIZUMAB
     Indication: Multiple sclerosis
     Route: 065
     Dates: start: 202102
  2. OCREVUS [Suspect]
     Active Substance: OCRELIZUMAB
     Dosage: FORM STRENGTH: 300MG/10ML SOLUTION, INFUSE 20 ML (600 MG).?ON 27-AUG-2024, PATIENT RECEIVED MOST REC
     Route: 042
     Dates: start: 20240729
  3. CHOLECALCIFEROL [Concomitant]
     Active Substance: CHOLECALCIFEROL
     Route: 048
  4. LISINOPRIL [Concomitant]
     Active Substance: LISINOPRIL
     Dates: start: 20240611
  5. CRESTOR [Concomitant]
     Active Substance: ROSUVASTATIN CALCIUM
     Route: 048
     Dates: start: 20240318

REACTIONS (6)
  - Vitamin D deficiency [Unknown]
  - Hypoaesthesia [Recovered/Resolved]
  - COVID-19 [Unknown]
  - Tonsillitis [Unknown]
  - Ear infection [Unknown]
  - Memory impairment [Unknown]
